FAERS Safety Report 6222023-2 (Version None)
Quarter: 2009Q2

REPORT INFORMATION
  Report Type: 
  Country: None (occurrence: None)
  Receive Date: 20090611
  Receipt Date: 20090601
  Transmission Date: 20091009
  Serious: Yes (Other)
  Sender: FDA-Public Use
  Company Number: US-JNJFOC-20090600833

PATIENT
  Sex: Female
  Weight: 72.58 kg

DRUGS (4)
  1. INVEGA [Suspect]
     Indication: BIPOLAR DISORDER
     Route: 048
  2. RESTORIL [Concomitant]
     Indication: SLEEP DISORDER THERAPY
     Route: 048
  3. LAMICTAL [Concomitant]
     Route: 048
  4. CYMBALTA [Concomitant]
     Route: 048

REACTIONS (4)
  - DROOLING [None]
  - DYSARTHRIA [None]
  - DYSKINESIA [None]
  - SYNCOPE [None]
